FAERS Safety Report 5923331-2 (Version None)
Quarter: 2008Q4

REPORT INFORMATION
  Report Type: 
  Country: None (occurrence: None)
  Receive Date: 20081015
  Receipt Date: 20081002
  Transmission Date: 20090506
  Serious: Yes (Hospitalization)
  Sender: FDA-Public Use
  Company Number: 237992J08USA

PATIENT
  Age: 42 Year
  Sex: Female
  Weight: 59 kg

DRUGS (3)
  1. REBIF [Suspect]
     Indication: MULTIPLE SCLEROSIS
     Dosage: 44 MCG, 3 IN 1 WEEKS, SUBCUTANEOUS
     Route: 058
     Dates: start: 20050725
  2. LISINOPRIL-HYDROCHLOROTHIAZIDE (PRINZIDE /00977901/) [Concomitant]
  3. FIORICET [Concomitant]

REACTIONS (7)
  - INJECTION SITE CELLULITIS [None]
  - INJECTION SITE INFLAMMATION [None]
  - INJECTION SITE MASS [None]
  - INJECTION SITE PAIN [None]
  - INJECTION SITE REACTION [None]
  - INJECTION SITE SWELLING [None]
  - WRONG TECHNIQUE IN DRUG USAGE PROCESS [None]
